FAERS Safety Report 9594156 (Version 1)
Quarter: 2013Q4

REPORT INFORMATION
  Report Type: Report from Study
  Country: SE (occurrence: SE)
  Receive Date: 20131004
  Receipt Date: 20131004
  Transmission Date: 20140711
  Serious: Yes (Hospitalization)
  Sender: FDA-Public Use
  Company Number: SE-ROCHE-1283462

PATIENT
  Age: 55 Year
  Sex: Male

DRUGS (3)
  1. CAPECITABINE [Suspect]
     Indication: GASTRIC CANCER
     Dosage: LAST TREATMENT RECIEVED ON 13/SEP/2013
     Route: 048
     Dates: start: 20130409, end: 20130925
  2. EPIRUBICIN [Suspect]
     Indication: GASTRIC CANCER
     Dosage: CUMULATIVE DOSE: 200 MG/M2, LAST TREATMENT RECIEVED ON 12/SEP/2013
     Route: 042
     Dates: start: 20130409
  3. OXALIPLATIN [Suspect]
     Indication: GASTRIC CANCER
     Dosage: CUMULATIVE DOSE: 520 MG/M2, LAST TREATMENT RECIEVED ON 12/SEP/2013
     Route: 042
     Dates: start: 20130409

REACTIONS (2)
  - Abdominal pain [Recovered/Resolved]
  - Anastomotic leak [Recovered/Resolved]
